FAERS Safety Report 6016506-8 (Version None)
Quarter: 2008Q4

REPORT INFORMATION
  Report Type: 
  Country: None (occurrence: None)
  Receive Date: 20081222
  Receipt Date: 20081211
  Transmission Date: 20090506
  Serious: Yes (Hospitalization)
  Sender: FDA-Public Use
  Company Number: CH-AVENTIS-200821700GDDC

PATIENT
  Age: 78 Year
  Sex: Female

DRUGS (5)
  1. FLAGYL [Suspect]
     Route: 048
     Dates: start: 20080329
  2. INVANZ [Suspect]
     Dosage: DOSE: UNK
     Route: 042
     Dates: end: 20080526
  3. KONAKION [Concomitant]
     Dosage: DOSE: 1 DOSE FORM
     Route: 042
  4. ALDACTONE [Concomitant]
     Route: 048
  5. TRIATEC                            /00885601/ [Concomitant]
     Dosage: DOSE: 1 DOSE FORM
     Route: 048

REACTIONS (4)
  - DIARRHOEA [None]
  - MUSCULAR WEAKNESS [None]
  - SPEECH DISORDER [None]
  - VOMITING [None]
